FAERS Safety Report 20072176 (Version 2)
Quarter: 2021Q4

REPORT INFORMATION
  Report Type: Spontaneous
  Country: US (occurrence: US)
  Receive Date: 20211116
  Receipt Date: 20211228
  Transmission Date: 20220303
  Serious: Yes (Hospitalization, Other)
  Sender: FDA-Public Use
  Company Number: None

PATIENT
  Age: 28 Year
  Sex: Female

DRUGS (1)
  1. QUETIAPINE FUMARATE [Suspect]
     Active Substance: QUETIAPINE FUMARATE
     Indication: Bipolar I disorder
     Dosage: 800 MILLIGRAM, QD, NIGHTLY
     Route: 065

REACTIONS (20)
  - Drug interaction [Unknown]
  - Lactic acidosis [Recovered/Resolved]
  - Blepharospasm [Recovered/Resolved]
  - Mental status changes [Recovered/Resolved]
  - Disorganised speech [Recovered/Resolved]
  - Eye movement disorder [Recovered/Resolved]
  - Toxicity to various agents [Unknown]
  - Food interaction [Unknown]
  - Muscle spasms [Recovered/Resolved]
  - Dyskinesia [Recovered/Resolved]
  - Dystonia [Recovered/Resolved]
  - Sedation [Recovered/Resolved]
  - Anxiety [Recovered/Resolved]
  - Vomiting [Recovered/Resolved]
  - Nausea [Recovered/Resolved]
  - Tachycardia [Recovered/Resolved]
  - Lethargy [Recovered/Resolved]
  - Electrocardiogram QT prolonged [Recovered/Resolved]
  - Confusional state [Recovered/Resolved]
  - Extrapyramidal disorder [Recovered/Resolved]
